FAERS Safety Report 5126147-2 (Version None)
Quarter: 2006Q3

REPORT INFORMATION
  Report Type: 
  Country: None (occurrence: None)
  Receive Date: 20060823
  Receipt Date: 20051108
  Transmission Date: 20061208
  Serious: Yes (Hospitalization)
  Sender: FDA-Public Use
  Company Number: 2005058303

PATIENT
  Age: 78 Year
  Sex: Male
  Weight: 63.2768 kg

DRUGS (2)
  1. NORVASC [Suspect]
     Indication: HYPERTENSION
     Dosage: 10 MG (10 MG, 1 IN 1 D), ORAL
     Route: 048
     Dates: start: 20050303, end: 20050301
  2. TOPAMAX [Suspect]
     Indication: ILL-DEFINED DISORDER
     Dosage: 50 MG (25 MG, 2 IN 1 D), UNKNOWN

REACTIONS (2)
  - MUSCLE TWITCHING [None]
  - TREMOR [None]
